FAERS Safety Report 4679503-0 (Version None)
Quarter: 2005Q2

REPORT INFORMATION
  Report Type: 
  Country: None (occurrence: None)
  Receive Date: 20050531
  Receipt Date: 20050513
  Transmission Date: 20051028
  Serious: No
  Sender: FDA-Public Use
  Company Number: 11143

PATIENT
  Age: 78 Year
  Sex: Female

DRUGS (30)
  1. MAGNESIUM SULFATE [Suspect]
     Indication: PROPHYLAXIS
     Dosage: 2.5 MG ONCE
  2. PANCURONIUM [Suspect]
     Dosage: 5 MG OTH/5MG OTH/2 MG
  3. VANCOMYCIN [Suspect]
  4. FUROSEMIDE [Suspect]
     Dosage: 40 MG BID
  5. DILTIAZEM HYDROCHRLORIDE [Suspect]
  6. SEVOFLURANE [Suspect]
     Indication: ANAESTHESIA
  7. ROCURONIUM [Suspect]
     Indication: ANAESTHESIA
     Dosage: 50 MG ONCE/30 MG ONCE
  8. MANNITOL [Suspect]
  9. NADOLOL [Suspect]
  10. MIDAZOLAM [Concomitant]
  11. MILRINONE [Concomitant]
  12. ACETYLSALICYLIC ACID [Concomitant]
  13. FAMOTIDINE [Concomitant]
  14. AMIODARONE HYDROCHLORIDE [Concomitant]
  15. EPINEPHRINE [Concomitant]
  16. NOREPINEPHRINE [Concomitant]
  17. ISOSORBIDE MONONITRATE [Concomitant]
  18. OMEPRAZOLE [Concomitant]
  19. NITROGLYCERIN [Concomitant]
  20. APROTININ [Concomitant]
  21. INSULIN [Concomitant]
  22. CALCIUM CHLORIDE [Concomitant]
  23. PENTASTARCH [Concomitant]
  24. RED BLOOD CELLS [Concomitant]
  25. PLASMA [Concomitant]
  26. PLATELETS [Concomitant]
  27. CRYOPRECIPITATED AHF [Concomitant]
  28. SUFENTANIL [Concomitant]
  29. HYPERTONIC SOLUTION [Concomitant]
  30. TICARCILLIN DISODIUM/CLAVULANATE POTASSIUM [Concomitant]

REACTIONS (27)
  - ACTIVATED PARTIAL THROMBOPLASTIN TIME PROLONGED [None]
  - ANAESTHETIC COMPLICATION [None]
  - AORTIC DISSECTION [None]
  - AREFLEXIA [None]
  - ASPARTATE AMINOTRANSFERASE INCREASED [None]
  - BLOOD AMYLASE INCREASED [None]
  - BLOOD BILIRUBIN INCREASED [None]
  - BLOOD CALCIUM DECREASED [None]
  - BLOOD CHLORIDE INCREASED [None]
  - BLOOD CREATININE INCREASED [None]
  - BLOOD GLUCOSE INCREASED [None]
  - BLOOD MAGNESIUM INCREASED [None]
  - BLOOD SODIUM INCREASED [None]
  - BLOOD UREA INCREASED [None]
  - HAEMATOCRIT DECREASED [None]
  - HAEMOGLOBIN DECREASED [None]
  - INTERNATIONAL NORMALISED RATIO INCREASED [None]
  - LOSS OF CONSCIOUSNESS [None]
  - MIOSIS [None]
  - MUSCLE DISORDER [None]
  - NEUROMUSCULAR BLOCK PROLONGED [None]
  - NEUROMUSCULAR BLOCKADE [None]
  - OVERDOSE [None]
  - PLATELET COUNT ABNORMAL [None]
  - PROCEDURAL COMPLICATION [None]
  - PUPILLARY REFLEX IMPAIRED [None]
  - WHITE BLOOD CELL COUNT INCREASED [None]
